FAERS Safety Report 6069452-8 (Version None)
Quarter: 2009Q1

REPORT INFORMATION
  Report Type: 
  Country: None (occurrence: None)
  Receive Date: 20090206
  Receipt Date: 20090128
  Transmission Date: 20090719
  Serious: Yes (Death, Hospitalization)
  Sender: FDA-Public Use
  Company Number: IN-BAXTER-2008BH012947

PATIENT
  Sex: Female
  Weight: 57 kg

DRUGS (2)
  1. DIANEAL [Suspect]
     Indication: RENAL FAILURE CHRONIC
     Route: 033
     Dates: start: 20081001, end: 20081119
  2. DIANEAL [Suspect]
     Route: 033
     Dates: start: 20060301, end: 20081001

REACTIONS (7)
  - ANOREXIA [None]
  - CARDIAC ARREST [None]
  - DISORIENTATION [None]
  - DIZZINESS [None]
  - GASTROINTESTINAL INFECTION [None]
  - HYPOALBUMINAEMIA [None]
  - HYPONATRAEMIA [None]
